FAERS Safety Report 6092600-0 (Version None)
Quarter: 2009Q1

REPORT INFORMATION
  Report Type: 
  Country: None (occurrence: None)
  Receive Date: 20090225
  Receipt Date: 20081002
  Transmission Date: 20090719
  Serious: No
  Sender: FDA-Public Use
  Company Number: US-BRISTOL-MYERS SQUIBB COMPANY-14356356

PATIENT
  Age: 52 Year
  Sex: Female
  Weight: 82 kg

DRUGS (7)
  1. KENALOG [Suspect]
     Dosage: KENALOG 10. 2ND INJ ON 26SEP08
     Route: 031
     Dates: start: 20080919
  2. LEVOTHYROXINE SODIUM [Concomitant]
  3. NOVOLOG [Concomitant]
     Dosage: NOVOLOG INSULIN PUMP
  4. METFORMIN HCL [Concomitant]
  5. DIOVAN HCT [Concomitant]
     Dosage: DIOVAN HCT 320 25MG
  6. LIPITOR [Concomitant]
  7. ACETAZOLAMIDE [Concomitant]

REACTIONS (2)
  - BLOOD GLUCOSE INCREASED [None]
  - HEADACHE [None]
